FAERS Safety Report 9095668 (Version 1)
Quarter: 2013Q1

REPORT INFORMATION
  Report Type: Spontaneous
  Country: US (occurrence: US)
  Receive Date: 20130220
  Receipt Date: 20130220
  Transmission Date: 20140127
  Serious: No
  Sender: FDA-Public Use
  Company Number: US-009507513-1302USA008714

PATIENT
  Age: 60 Year
  Sex: Female

DRUGS (1)
  1. SAPHRIS [Suspect]
     Dosage: RAPID DISSOLVE

REACTIONS (3)
  - Oral mucosal blistering [Recovered/Resolved]
  - Cough [Recovered/Resolved]
  - Respiratory tract congestion [Recovered/Resolved]
